FAERS Safety Report 7332287-X (Version None)
Quarter: 2011Q1

REPORT INFORMATION
  Report Type: 
  Country: None (occurrence: None)
  Receive Date: 20110304
  Receipt Date: 20110302
  Transmission Date: 20110831
  Serious: Yes (Other)
  Sender: FDA-Public Use
  Company Number: BR-ABBOTT-11P-020-0707893-00

PATIENT
  Sex: Female
  Weight: 59 kg

DRUGS (1)
  1. HUMIRA [Suspect]
     Indication: CROHN'S DISEASE
     Route: 058
     Dates: start: 20101201, end: 20110101

REACTIONS (3)
  - CEREBROVASCULAR ACCIDENT [None]
  - VIRAL MYOCARDITIS [None]
  - CARDIAC FAILURE [None]
